FAERS Safety Report 10239015 (Version 1)
Quarter: 2014Q2

REPORT INFORMATION
  Report Type: Spontaneous
  Country: NL (occurrence: NL)
  Receive Date: 20140616
  Receipt Date: 20140616
  Transmission Date: 20141212
  Serious: Yes (Other)
  Sender: FDA-Public Use
  Company Number: NL-MYLANLABS-2014S1013476

PATIENT
  Age: 49 Year
  Sex: Female

DRUGS (1)
  1. DESOGESTREL/ETHINYLESTRADIOL [Suspect]
     Dosage: STRENGTH: 0.03 MG/0.15 MG
     Dates: end: 201404

REACTIONS (1)
  - Diverticulitis [Unknown]
